FAERS Safety Report 21053420 (Version 1)
Quarter: 2022Q3

REPORT INFORMATION
  Report Type: Spontaneous
  Country: US (occurrence: None)
  Receive Date: 20220707
  Receipt Date: 20220707
  Transmission Date: 20221027
  Serious: Yes (Disabling)
  Sender: FDA-Public Use
  Company Number: None

PATIENT
  Age: 63 Year
  Sex: Male
  Weight: 72.9 kg

DRUGS (5)
  1. PAXLOVID [Suspect]
     Active Substance: NIRMATRELVIR\RITONAVIR
     Indication: SARS-CoV-2 test positive
     Dosage: OTHER QUANTITY : 30 TABLET(S);?FREQUENCY : TWICE A DAY;?
     Route: 048
     Dates: start: 20220624, end: 20220628
  2. PANTOPRAZOLE [Concomitant]
     Active Substance: PANTOPRAZOLE
  3. TAMSULOSIN [Concomitant]
     Active Substance: TAMSULOSIN
  4. VITAMIN D [Concomitant]
     Active Substance: VITAMIN D NOS
  5. CETIRIZINE [Concomitant]

REACTIONS (6)
  - COVID-19 [None]
  - Dysgeusia [None]
  - Rhinorrhoea [None]
  - Sinus headache [None]
  - Pyrexia [None]
  - Cough [None]

NARRATIVE: CASE EVENT DATE: 20220702
